FAERS Safety Report 15226412 (Version 1)
Quarter: 2018Q3

REPORT INFORMATION
  Report Type: Spontaneous
  Country: US (occurrence: US)
  Receive Date: 20180801
  Receipt Date: 20180801
  Transmission Date: 20181010
  Serious: No
  Sender: FDA-Public Use
  Company Number: US-ASTRAZENECA-2018SE92320

PATIENT
  Age: 19344 Day
  Sex: Male
  Weight: 83.9 kg

DRUGS (5)
  1. BYDUREON BCISE [Suspect]
     Active Substance: EXENATIDE
     Indication: BLOOD GLUCOSE ABNORMAL
     Route: 058
     Dates: start: 201806, end: 20180703
  2. LOSARTAN. [Concomitant]
     Active Substance: LOSARTAN
     Indication: BLOOD PRESSURE ABNORMAL
     Dates: start: 2015
  3. TOUJEO [Concomitant]
     Active Substance: INSULIN GLARGINE
     Dosage: 20.0MG UNKNOWN
     Dates: start: 2017
  4. METFORMIN [Concomitant]
     Active Substance: METFORMIN HYDROCHLORIDE
     Dates: start: 2015
  5. TOUJEO [Concomitant]
     Active Substance: INSULIN GLARGINE
     Dosage: 25.0MG UNKNOWN

REACTIONS (4)
  - Wrong technique in device usage process [Not Recovered/Not Resolved]
  - Drug dose omission [Unknown]
  - Blood glucose abnormal [Unknown]
  - Blood glucose decreased [Unknown]

NARRATIVE: CASE EVENT DATE: 20180710
